FAERS Safety Report 6230279-5 (Version None)
Quarter: 2009Q2

REPORT INFORMATION
  Report Type: 
  Country: None (occurrence: None)
  Receive Date: 20090615
  Receipt Date: 20090609
  Transmission Date: 20091009
  Serious: Yes (Other)
  Sender: FDA-Public Use
  Company Number: JP-B.I. PHARMACEUTICALS,INC./RIDGEFIELD-2009-DE-04129GD

PATIENT
  Age: 54 Year
  Sex: Male
  Weight: 71 kg

DRUGS (5)
  1. TELMISARTAN [Suspect]
     Indication: DIABETIC NEPHROPATHY
     Dosage: 80MG
     Dates: start: 20080401, end: 20081101
  2. DIURETIC [Concomitant]
     Indication: DIABETIC NEPHROPATHY
  3. URIC ACID BIOSYNTHESIS INHIBITOR [Concomitant]
     Indication: DIABETIC NEPHROPATHY
  4. HYPERPHOSPHATEMIA DRUG [Concomitant]
     Indication: DIABETIC NEPHROPATHY
  5. SARPOGRELATE [Concomitant]

REACTIONS (2)
  - ARTERIOSCLEROSIS [None]
  - HYPOGLYCAEMIA [None]
